FAERS Safety Report 5599340-2 (Version None)
Quarter: 2008Q1

REPORT INFORMATION
  Report Type: 
  Country: None (occurrence: None)
  Receive Date: 20080122
  Receipt Date: 20050214
  Transmission Date: 20080703
  Serious: Yes (Hospitalization)
  Sender: FDA-Public Use
  Company Number: KR-PFIZER INC-2005031095

PATIENT
  Age: 18 Month

DRUGS (2)
  1. PREDNISOLONE [Suspect]
     Indication: ILL-DEFINED DISORDER
     Dosage: DAILY DOSE:3MG
     Route: 065
  2. TACROLIMUS [Concomitant]
     Dosage: DAILY DOSE:9MG
     Route: 065

REACTIONS (7)
  - ABDOMINAL DISTENSION [None]
  - DYSPNOEA [None]
  - EPSTEIN-BARR VIRUS ANTIGEN POSITIVE [None]
  - HEPATIC VEIN STENOSIS [None]
  - LYMPHOPROLIFERATIVE DISORDER [None]
  - OBSTRUCTIVE AIRWAYS DISORDER [None]
  - URINE OUTPUT DECREASED [None]
